FAERS Safety Report 8267451 (Version 2)
Quarter: 2012Q4

REPORT INFORMATION
  Report Type: 
  Country: ES (occurrence: ES)
  Receive Date: 20111129
  Receipt Date: 20121009
  Transmission Date: 20130627
  Serious: Yes (Hospitalization, Other)
  Sender: FDA-Public Use
  Company Number: ES-PFIZER INC-2011289755

PATIENT
  Age: 78 Year
  Sex: Male

DRUGS (11)
  1. TRANGOREX [Suspect]
     Indication: PRODUCT USED FOR UNKNOWN INDICATION
     Dosage: 200 mg, daily
     Route: 048
     Dates: start: 201011, end: 20110604
  2. CLOPIDOGREL [Interacting]
     Indication: PRODUCT USED FOR UNKNOWN INDICATION
     Dosage: 75 mg, daily
     Route: 048
     Dates: start: 200808, end: 20110604
  3. ATORVASTATIN CALCIUM [Interacting]
     Indication: HYPERLIPIDAEMIA
     Dosage: 40 mg, daily
     Route: 048
     Dates: end: 20110604
  4. AAS [Interacting]
     Indication: PRODUCT USED FOR UNKNOWN INDICATION
     Dosage: 150 mg, daily
     Route: 048
     Dates: start: 200808, end: 20110604
  5. SINTROM [Interacting]
     Indication: PRODUCT USED FOR UNKNOWN INDICATION
     Dosage: UNK
     Route: 048
     Dates: end: 20110604
  6. UNIKET [Concomitant]
     Dosage: UNK
  7. INSULIN MIXTARD [Concomitant]
     Dosage: UNK
  8. HYDRALAZINE [Concomitant]
     Dosage: UNK
  9. RANITIDINE [Concomitant]
     Dosage: UNK
  10. TAMSULOSIN HYDROCHLORIDE [Concomitant]
     Dosage: UNK
  11. BISOPROLOL [Concomitant]
     Dosage: UNK
     Dates: end: 20110604

REACTIONS (2)
  - Drug interaction [Recovering/Resolving]
  - Cerebral haematoma [Recovering/Resolving]
